FAERS Safety Report 9130015 (Version 1)
Quarter: 2013Q1

REPORT INFORMATION
  Report Type: Report from Study
  Country: US (occurrence: US)
  Receive Date: 20130125
  Receipt Date: 20130125
  Transmission Date: 20140127
  Serious: Yes (Other)
  Sender: FDA-Public Use
  Company Number: US-CELGENEUS-163-21880-13012966

PATIENT
  Age: 73 None
  Sex: Female
  Weight: 50.39 kg

DRUGS (7)
  1. REVLIMID [Suspect]
     Indication: MYELODYSPLASTIC SYNDROME
     Dosage: 3.75 MILLIGRAM
     Route: 048
     Dates: start: 20121105
  2. REVLIMID [Suspect]
     Dosage: 5 MILLIGRAM
     Route: 048
     Dates: start: 201301
  3. COUMADIN [Concomitant]
     Indication: THROMBOSIS
     Route: 065
  4. ULTRACET [Concomitant]
     Indication: PAIN IN EXTREMITY
     Route: 065
  5. COREG [Concomitant]
     Indication: HYPERTENSION
     Route: 065
  6. CLONIDINE [Concomitant]
     Indication: HYPERTENSION
     Route: 065
  7. AVONEX [Concomitant]
     Indication: MULTIPLE SCLEROSIS
     Route: 065

REACTIONS (5)
  - Retinal vascular thrombosis [Not Recovered/Not Resolved]
  - Mammogram abnormal [Not Recovered/Not Resolved]
  - Dysphagia [Not Recovered/Not Resolved]
  - Thrombosis [Not Recovered/Not Resolved]
  - Haemoglobin decreased [Not Recovered/Not Resolved]
